FAERS Safety Report 16452283 (Version 1)
Quarter: 2019Q2

REPORT INFORMATION
  Report Type: Spontaneous
  Country: GB (occurrence: GB)
  Receive Date: 20190619
  Receipt Date: 20190619
  Transmission Date: 20190711
  Serious: Yes (Life-Threatening)
  Sender: FDA-Public Use
  Company Number: GB-MYLANLABS-2019M1056421

PATIENT
  Age: 21 Year
  Sex: Female

DRUGS (1)
  1. CITALOPRAM [Suspect]
     Active Substance: CITALOPRAM HYDROBROMIDE
     Indication: DEPRESSION
     Dosage: 20 MILLIGRAM, QD
     Route: 048
     Dates: start: 20180306, end: 20180819

REACTIONS (6)
  - Depression [Unknown]
  - Hallucination [Unknown]
  - Suicide attempt [Recovered/Resolved with Sequelae]
  - Suicidal ideation [Recovered/Resolved]
  - Nightmare [Unknown]
  - Dyskinesia [Unknown]

NARRATIVE: CASE EVENT DATE: 20180409
